FAERS Safety Report 17962933 (Version 1)
Quarter: 2020Q2

REPORT INFORMATION
  Report Type: Spontaneous
  Country: IT (occurrence: IT)
  Receive Date: 20200630
  Receipt Date: 20200630
  Transmission Date: 20200714
  Serious: Yes (Other)
  Sender: FDA-Public Use
  Company Number: IT-009507513-2006ITA009915

PATIENT
  Age: 35 Year
  Sex: Female

DRUGS (1)
  1. ETONOGESTREL IMPLANT- UNKNOWN [Suspect]
     Active Substance: ETONOGESTREL
     Dosage: 1 DOSAGE FORM
     Route: 058

REACTIONS (5)
  - Device dislocation [Recovered/Resolved]
  - Surgery [Unknown]
  - Device issue [Unknown]
  - Neuropathy peripheral [Recovered/Resolved]
  - Complication associated with device [Recovered/Resolved]
